FAERS Safety Report 6206946-6 (Version None)
Quarter: 2009Q2

REPORT INFORMATION
  Report Type: 
  Country: None (occurrence: None)
  Receive Date: 20090528
  Receipt Date: 20090520
  Transmission Date: 20091009
  Serious: No
  Sender: FDA-Public Use
  Company Number: B0567418A

PATIENT
  Sex: Female

DRUGS (6)
  1. ROPINIROLE HYDROCHLORIDE [Suspect]
     Indication: PARKINSON'S DISEASE
     Dosage: 16MG UNKNOWN
     Route: 065
     Dates: start: 20081101
  2. ROPINIROLE HYDROCHLORIDE [Suspect]
     Route: 065
     Dates: start: 20081001
  3. HRT [Concomitant]
  4. COENZYME Q10 [Concomitant]
  5. CITALOPRAM HYDROBROMIDE [Concomitant]
     Indication: DEPRESSION
     Dosage: 10MG PER DAY
  6. RASAGILINE MESILATE [Concomitant]
     Indication: PARKINSON'S DISEASE
     Dates: start: 20070601

REACTIONS (4)
  - HEADACHE [None]
  - HYPOAESTHESIA [None]
  - OEDEMA PERIPHERAL [None]
  - PARAESTHESIA [None]
